FAERS Safety Report 18641238 (Version 1)
Quarter: 2020Q4

REPORT INFORMATION
  Report Type: Spontaneous
  Country: FR (occurrence: FR)
  Receive Date: 20201221
  Receipt Date: 20201221
  Transmission Date: 20210114
  Serious: Yes (Death, Hospitalization)
  Sender: FDA-Public Use
  Company Number: FR-TEVA-2020-FR-1859239

PATIENT
  Age: 76 Year
  Sex: Male
  Weight: 68 kg

DRUGS (7)
  1. CISPLATIN. [Suspect]
     Active Substance: CISPLATIN
     Indication: SMALL INTESTINE ADENOCARCINOMA
     Route: 042
     Dates: start: 20201014, end: 20201103
  2. FLUOROURACILE [Suspect]
     Active Substance: FLUOROURACIL
     Indication: SMALL INTESTINE ADENOCARCINOMA
     Route: 042
     Dates: start: 20190314, end: 20201103
  3. CALCIUM (LEVOFOLINATE  DE) [Suspect]
     Active Substance: LEVOLEUCOVORIN CALCIUM
     Indication: SMALL INTESTINE ADENOCARCINOMA
     Route: 041
     Dates: start: 20190314, end: 20201103
  4. MONTELUKAST SODIQUE [Concomitant]
     Active Substance: MONTELUKAST SODIUM
     Dosage: 10 MG
     Route: 048
  5. PRAVASTATINE SODIQUE [Concomitant]
     Active Substance: PRAVASTATIN SODIUM
     Dosage: 40 MG
     Route: 048
  6. VENTOLINE [Concomitant]
     Active Substance: ALBUTEROL
     Dosage: 2 DOSAGE FORMS
     Route: 055
  7. SEREVENT DISKUS [Concomitant]
     Active Substance: SALMETEROL XINAFOATE
     Dosage: 2 DOSAGE FORMS
     Route: 055

REACTIONS (1)
  - Ischaemic stroke [Fatal]

NARRATIVE: CASE EVENT DATE: 20201105
